FAERS Safety Report 10162594 (Version 4)
Quarter: 2014Q3

REPORT INFORMATION
  Report Type: Report from Study
  Country: DE (occurrence: DE)
  Receive Date: 20140509
  Receipt Date: 20140919
  Transmission Date: 20150326
  Serious: Yes (Other)
  Sender: FDA-Public Use
  Company Number: PHHY2014DE056340

PATIENT
  Sex: Female

DRUGS (12)
  1. MAGNESIUM VERLA N                  /01455601/ [Concomitant]
     Dosage: 1 DF, QD
     Dates: start: 20120711
  2. BACLOFEN AL [Concomitant]
     Indication: MUSCLE SPASTICITY
     Dosage: 0.5 DF, BID
     Route: 048
     Dates: start: 20110523
  3. TRAMADOL AXCOUNT [Concomitant]
     Dosage: 100 MG, QD
     Dates: start: 20120213, end: 20120509
  4. LORAZEPAM DURA [Concomitant]
     Indication: SLEEP DISORDER
     Dosage: 1 DF, PRN
     Dates: start: 20110523
  5. GILENYA [Suspect]
     Active Substance: FINGOLIMOD HYDROCHLORIDE
     Dosage: 0.5 MG, QD
     Route: 048
     Dates: start: 20130323, end: 20130903
  6. TRAMADOL [Concomitant]
     Active Substance: TRAMADOL
     Indication: RESTLESS LEGS SYNDROME
     Dosage: 100 MG, TID
     Route: 048
     Dates: start: 20111006, end: 20120229
  7. GILENYA [Suspect]
     Active Substance: FINGOLIMOD HYDROCHLORIDE
     Indication: MULTIPLE SCLEROSIS
     Dosage: 0.5 MG, QD
     Route: 048
     Dates: start: 20111110, end: 20130317
  8. AMITRIPTYLIN BETA [Concomitant]
     Indication: DEPRESSION
     Dosage: 1 DF, QD
     Route: 048
     Dates: start: 20110523
  9. NEUPRO [Concomitant]
     Active Substance: ROTIGOTINE
     Indication: RESTLESS LEGS SYNDROME
     Dosage: 1 DF, QD
     Route: 048
     Dates: start: 20111123
  10. GILENYA [Suspect]
     Active Substance: FINGOLIMOD HYDROCHLORIDE
     Dosage: 0.5 MG, QD
     Route: 048
     Dates: start: 20130915
  11. CITALOPRAM BIOCHEMIE [Concomitant]
     Indication: DEPRESSION
     Dosage: 1 DF, QD
     Route: 048
     Dates: start: 20110523
  12. GABAPENTIN. [Concomitant]
     Active Substance: GABAPENTIN
     Indication: NEURALGIA
     Dosage: 1 DF, TID
     Route: 048
     Dates: start: 20111006

REACTIONS (1)
  - Basal cell carcinoma [Recovered/Resolved]

NARRATIVE: CASE EVENT DATE: 20140217
